FAERS Safety Report 17893722 (Version 1)
Quarter: 2020Q2

REPORT INFORMATION
  Report Type: Spontaneous
  Country: US (occurrence: US)
  Receive Date: 20200615
  Receipt Date: 20200615
  Transmission Date: 20200714
  Serious: No
  Sender: FDA-Public Use
  Company Number: US-AMGEN-USASP2020092855

PATIENT
  Age: 75 Year
  Sex: Male

DRUGS (1)
  1. REPATHA [Suspect]
     Active Substance: EVOLOCUMAB
     Indication: BLOOD CHOLESTEROL INCREASED
     Dosage: UNK
     Route: 065
     Dates: start: 20200605

REACTIONS (5)
  - Pain [Unknown]
  - Myalgia [Unknown]
  - Back pain [Unknown]
  - Musculoskeletal pain [Unknown]
  - Nausea [Unknown]

NARRATIVE: CASE EVENT DATE: 20200605
